FAERS Safety Report 24343270 (Version 1)
Quarter: 2024Q3

REPORT INFORMATION
  Report Type: Other
  Country: IT (occurrence: IT)
  Receive Date: 20240920
  Receipt Date: 20240920
  Transmission Date: 20241016
  Serious: Yes (Death)
  Sender: Steriscience PTE
  Company Number: IT-PFIZER INC-2020085909

PATIENT
  Age: 67 Year
  Sex: Male

DRUGS (4)
  1. VANCOMYCIN [Suspect]
     Active Substance: VANCOMYCIN
     Indication: Klebsiella infection
     Dosage: 2 G, DAILY
     Route: 065
  2. COLISTIN [Suspect]
     Active Substance: COLISTIN
     Indication: Septic shock
     Dosage: 9 MIL LOADING DOSE
     Route: 065
  3. COLISTIN [Suspect]
     Active Substance: COLISTIN
     Dosage: 4.5 MIL BID
     Route: 065
  4. MEROPENEM [Suspect]
     Active Substance: MEROPENEM
     Indication: Klebsiella infection
     Dosage: 2 G, 3X/DAY
     Route: 065

REACTIONS (2)
  - Acute kidney injury [Fatal]
  - Therapy non-responder [Fatal]
